FAERS Safety Report 6060454-4 (Version None)
Quarter: 2009Q1

REPORT INFORMATION
  Report Type: 
  Country: None (occurrence: None)
  Receive Date: 20090129
  Receipt Date: 20090116
  Transmission Date: 20090719
  Serious: No
  Sender: FDA-Public Use
  Company Number: SPI200800552

PATIENT
  Age: 27 Year
  Sex: Female
  Weight: 54.4 kg

DRUGS (2)
  1. AMITIZA [Suspect]
     Indication: IRRITABLE BOWEL SYNDROME
     Dosage: 8 MCG, BID, ORAL
     Route: 048
     Dates: start: 20080922, end: 20081003
  2. MULTIVITAMIN (VITAMIN NOS) [Concomitant]

REACTIONS (10)
  - DEPRESSED MOOD [None]
  - DIZZINESS [None]
  - DYSPNOEA [None]
  - FEELING ABNORMAL [None]
  - HEADACHE [None]
  - IMPAIRED WORK ABILITY [None]
  - MALAISE [None]
  - NAUSEA [None]
  - PHOTOPHOBIA [None]
  - TREATMENT NONCOMPLIANCE [None]
